FAERS Safety Report 10803259 (Version 2)
Quarter: 2015Q1

REPORT INFORMATION
  Report Type: Spontaneous
  Country: CN (occurrence: CN)
  Receive Date: 20150217
  Receipt Date: 20150309
  Transmission Date: 20150721
  Serious: Yes (Other)
  Sender: FDA-Public Use
  Company Number: CN-BAYER-2015-014207

PATIENT
  Age: 66 Year
  Sex: Male

DRUGS (2)
  1. NEXAVAR [Suspect]
     Active Substance: SORAFENIB
     Indication: METASTASES TO LUNG
     Dosage: 400 MG, BID
     Route: 048
  2. NEXAVAR [Suspect]
     Active Substance: SORAFENIB
     Indication: RENAL CELL CARCINOMA STAGE IV
     Dosage: 400 MG, BID
     Route: 048
     Dates: start: 20141204, end: 20150123

REACTIONS (6)
  - Immunodeficiency [Recovering/Resolving]
  - Immunosuppression [Recovering/Resolving]
  - Discomfort [None]
  - Depressed mood [None]
  - Abscess limb [Recovered/Resolved]
  - Abdominal lymphadenopathy [None]

NARRATIVE: CASE EVENT DATE: 20150123
